FAERS Safety Report 10583694 (Version 1)
Quarter: 2014Q4

REPORT INFORMATION
  Report Type: Spontaneous
  Country: NL (occurrence: NL)
  Receive Date: 20141114
  Receipt Date: 20141114
  Transmission Date: 20150529
  Serious: Yes (Disabling)
  Sender: FDA-Public Use
  Company Number: NL-JNJFOC-20141015636

PATIENT
  Age: 44 Year
  Sex: Female
  Weight: 65 kg

DRUGS (3)
  1. ISONIAZIDE [Concomitant]
     Active Substance: ISONIAZID
     Indication: TUBERCULOSIS
     Route: 065
     Dates: start: 20140625
  2. RIFAMPICINE [Concomitant]
     Active Substance: RIFAMPIN
     Indication: TUBERCULOSIS
     Route: 065
     Dates: start: 20140625
  3. REMICADE [Suspect]
     Active Substance: INFLIXIMAB
     Indication: CROHN^S DISEASE
     Route: 042
     Dates: start: 20140922

REACTIONS (1)
  - Alopecia [Not Recovered/Not Resolved]

NARRATIVE: CASE EVENT DATE: 20140922
